FAERS Safety Report 9350794 (Version 1)
Quarter: 2013Q2

REPORT INFORMATION
  Report Type: Spontaneous
  Country: GB (occurrence: GB)
  Receive Date: 20130617
  Receipt Date: 20130617
  Transmission Date: 20140414
  Serious: Yes (Hospitalization, Disabling, Other)
  Sender: FDA-Public Use
  Company Number: GB-MYLANLABS-2013S1012465

PATIENT
  Age: 53 Year
  Sex: Male
  Weight: 80 kg

DRUGS (2)
  1. RANITIDINE [Suspect]
     Indication: PROPHYLAXIS
     Route: 048
     Dates: start: 20130508, end: 20130516
  2. IBUPROFEN [Suspect]
     Indication: MUSCULOSKELETAL PAIN
     Route: 048
     Dates: start: 20130508, end: 20130513

REACTIONS (2)
  - Erythema multiforme [Recovering/Resolving]
  - Pemphigoid [Recovering/Resolving]
